FAERS Safety Report 12967818 (Version 1)
Quarter: 2016Q4

REPORT INFORMATION
  Report Type: Spontaneous
  Country: US (occurrence: US)
  Receive Date: 20161122
  Receipt Date: 20161122
  Transmission Date: 20170207
  Serious: Yes (Other)
  Sender: FDA-Public Use
  Company Number: None

PATIENT
  Age: 26 Year
  Sex: Female
  Weight: 63 kg

DRUGS (5)
  1. COMPAZINE [Suspect]
     Active Substance: PROCHLORPERAZINE MALEATE
     Indication: NAUSEA
     Route: 042
     Dates: start: 20161120, end: 20161120
  2. PROPRANOLOL [Concomitant]
     Active Substance: PROPRANOLOL\PROPRANOLOL HYDROCHLORIDE
  3. COMPAZINE [Suspect]
     Active Substance: PROCHLORPERAZINE MALEATE
     Indication: MIGRAINE
     Route: 042
     Dates: start: 20161120, end: 20161120
  4. MIRENA [Concomitant]
     Active Substance: LEVONORGESTREL
  5. NUUN TABLETS [Concomitant]

REACTIONS (6)
  - Chest pain [None]
  - Fatigue [None]
  - Dyspnoea [None]
  - Cough [None]
  - Presyncope [None]
  - Disorientation [None]

NARRATIVE: CASE EVENT DATE: 20161120
